FAERS Safety Report 20393605 (Version 1)
Quarter: 2022Q1

REPORT INFORMATION
  Report Type: Spontaneous
  Country: US (occurrence: None)
  Receive Date: 20220128
  Receipt Date: 20220128
  Transmission Date: 20220424
  Serious: No
  Sender: FDA-Public Use
  Company Number: 2022A025783

PATIENT
  Sex: Female

DRUGS (1)
  1. FASENRA [Suspect]
     Active Substance: BENRALIZUMAB
     Indication: Hypersensitivity
     Dosage: 30MG/ML EVERY EIGHT WEEKS
     Route: 058

REACTIONS (1)
  - Fatigue [Recovered/Resolved]
